FAERS Safety Report 20015445 (Version 1)
Quarter: 2021Q4

REPORT INFORMATION
  Report Type: Spontaneous
  Country: US (occurrence: None)
  Receive Date: 20211030
  Receipt Date: 20211030
  Transmission Date: 20220303
  Serious: Yes (Death, Life-Threatening)
  Sender: FDA-Public Use
  Company Number: None

PATIENT
  Age: 44 Year
  Sex: Male
  Weight: 97.2 kg

DRUGS (22)
  1. BARICITINIB [Suspect]
     Active Substance: BARICITINIB
     Indication: COVID-19
     Dosage: FREQUENCY : DAILY;?
     Route: 048
     Dates: start: 20211014, end: 20211022
  2. LOVENOX [Concomitant]
     Active Substance: ENOXAPARIN SODIUM
     Dates: start: 20211017, end: 20211022
  3. LEVOPHED [Concomitant]
     Active Substance: NOREPINEPHRINE BITARTRATE
     Dates: start: 20211018, end: 20211023
  4. LANTUS [Concomitant]
     Active Substance: INSULIN GLARGINE
     Dates: start: 20211022, end: 20211023
  5. LASIX [Concomitant]
     Active Substance: FUROSEMIDE
     Dates: start: 20211018, end: 20211021
  6. HUMALOG [Concomitant]
     Active Substance: INSULIN LISPRO
     Dates: start: 20211019, end: 20211023
  7. MYCAMINE [Concomitant]
     Active Substance: MICAFUNGIN SODIUM
     Dates: start: 20211023, end: 20211023
  8. DeTracrium [Concomitant]
     Dates: start: 20211021, end: 20211023
  9. PROTONIX [Concomitant]
     Active Substance: PANTOPRAZOLE SODIUM
     Dates: start: 20211020, end: 20211023
  10. FENTANYL [Concomitant]
     Active Substance: FENTANYL
     Dates: start: 20211018, end: 20211023
  11. DECADRON [Concomitant]
     Active Substance: DEXAMETHASONE
     Dates: start: 20211012, end: 20211023
  12. METRONIDAZOLE [Concomitant]
     Active Substance: METRONIDAZOLE
     Dates: start: 20211022, end: 20211023
  13. Diprovan [Concomitant]
     Dates: start: 20211018, end: 20211024
  14. KETAMINE [Concomitant]
     Active Substance: KETAMINE
     Dates: start: 20211022, end: 20211023
  15. VASOPRESSIN [Concomitant]
     Active Substance: VASOPRESSIN
     Dates: start: 20211023, end: 20211023
  16. CALCIUM GLUCONATE [Concomitant]
     Active Substance: CALCIUM GLUCONATE
     Dates: start: 20211022, end: 20211023
  17. CEFEPIME [Concomitant]
     Active Substance: CEFEPIME HYDROCHLORIDE
     Dates: start: 20211022, end: 20211023
  18. Peredix [Concomitant]
     Dates: start: 20211018, end: 20211023
  19. PHENYLEPHRINE [Concomitant]
     Active Substance: PHENYLEPHRINE HYDROCHLORIDE
     Dates: start: 20211022, end: 20211023
  20. ROCURONIUM [Concomitant]
     Active Substance: ROCURONIUM BROMIDE
     Dates: start: 20211023, end: 20211023
  21. SODIUM BICARBONATE [Concomitant]
     Active Substance: SODIUM BICARBONATE
     Dates: start: 20211023, end: 20211023
  22. SODIUM POLYSTYRENE SULFONATE [Concomitant]
     Active Substance: SODIUM POLYSTYRENE SULFONATE
     Dates: start: 20211022, end: 20211023

REACTIONS (14)
  - Pneumomediastinum [None]
  - Hypotension [None]
  - Renal impairment [None]
  - Hyperkalaemia [None]
  - Leukocytosis [None]
  - Transaminases increased [None]
  - Tachycardia [None]
  - Haematochezia [None]
  - Gastrointestinal haemorrhage [None]
  - Packed red blood cell transfusion [None]
  - Metabolic acidosis [None]
  - Respiratory acidosis [None]
  - Septic shock [None]
  - Multiple organ dysfunction syndrome [None]

NARRATIVE: CASE EVENT DATE: 20211023
